FAERS Safety Report 15603408 (Version 9)
Quarter: 2019Q3

REPORT INFORMATION
  Report Type: Report from Study
  Country: US (occurrence: US)
  Receive Date: 20181109
  Receipt Date: 20190813
  Transmission Date: 20191004
  Serious: Yes (Hospitalization)
  Sender: FDA-Public Use
  Company Number: US-ACTELION-A-US2016-136488

PATIENT
  Age: 82 Year
  Sex: Female
  Weight: 54.88 kg

DRUGS (7)
  1. OPSUMIT [Suspect]
     Active Substance: MACITENTAN
     Dosage: 10 MG, QD
     Route: 048
     Dates: start: 20150504
  2. TYVASO [Concomitant]
     Active Substance: TREPROSTINIL
     Indication: PRODUCT USED FOR UNKNOWN INDICATION
  3. ADCIRCA [Concomitant]
     Active Substance: TADALAFIL
     Indication: PRODUCT USED FOR UNKNOWN INDICATION
  4. OXYGEN. [Concomitant]
     Active Substance: OXYGEN
  5. ADEMPAS [Suspect]
     Active Substance: RIOCIGUAT
     Dosage: 1 MG, TID
     Route: 048
  6. OPSUMIT [Suspect]
     Active Substance: MACITENTAN
     Indication: PULMONARY HYPERTENSION
     Dosage: 10 MG, QD
     Route: 048
  7. ADEMPAS [Suspect]
     Active Substance: RIOCIGUAT
     Indication: PRODUCT USED FOR UNKNOWN INDICATION
     Dosage: 1.5 MG, UNK
     Route: 048

REACTIONS (40)
  - Gastrooesophageal reflux disease [Unknown]
  - Rhinorrhoea [Unknown]
  - Fall [Unknown]
  - Pulmonary arterial hypertension [Unknown]
  - Condition aggravated [Unknown]
  - Rash [Unknown]
  - Epistaxis [Unknown]
  - Oedema [Unknown]
  - Dehydration [Unknown]
  - Feeling abnormal [Unknown]
  - Diarrhoea [Unknown]
  - Scleroderma [Not Recovered/Not Resolved]
  - Weight decreased [Unknown]
  - Nervousness [Unknown]
  - Wound [Not Recovered/Not Resolved]
  - Heart rate increased [Unknown]
  - Burning sensation [Unknown]
  - Dysphagia [Unknown]
  - Oedema peripheral [Unknown]
  - Dysarthria [Unknown]
  - Blood pressure decreased [Unknown]
  - Anxiety [Unknown]
  - Cough [Unknown]
  - Pain [Unknown]
  - Malaise [Unknown]
  - Dry skin [Not Recovered/Not Resolved]
  - Dyspnoea [Unknown]
  - Asthenia [Recovered/Resolved]
  - Mental impairment [Unknown]
  - Skin oedema [Not Recovered/Not Resolved]
  - Head injury [Unknown]
  - Skin ulcer [Unknown]
  - Syncope [Unknown]
  - Headache [Unknown]
  - Vomiting [Recovered/Resolved]
  - Blister [Unknown]
  - Irritable bowel syndrome [Unknown]
  - Nausea [Unknown]
  - Nasal discomfort [Unknown]
  - Skin burning sensation [Not Recovered/Not Resolved]

NARRATIVE: CASE EVENT DATE: 20180924
